FAERS Safety Report 12842872 (Version 3)
Quarter: 2020Q3

REPORT INFORMATION
  Report Type: Spontaneous
  Country: US (occurrence: US)
  Receive Date: 20161013
  Receipt Date: 20200728
  Transmission Date: 20201102
  Serious: No
  Sender: FDA-Public Use
  Company Number: US-BIOGEN-2016BI00303312

PATIENT
  Sex: Female

DRUGS (1)
  1. TYSABRI [Suspect]
     Active Substance: NATALIZUMAB
     Indication: MULTIPLE SCLEROSIS
     Route: 065
     Dates: start: 20160720

REACTIONS (17)
  - Multiple sclerosis relapse [Not Recovered/Not Resolved]
  - Cough [Unknown]
  - Renal pain [Unknown]
  - Infusion site injury [Not Recovered/Not Resolved]
  - Rhinorrhoea [Unknown]
  - Colitis [Unknown]
  - Nasal discomfort [Unknown]
  - Poor venous access [Unknown]
  - Alopecia [Not Recovered/Not Resolved]
  - Hypotension [Unknown]
  - Dyspnoea [Unknown]
  - Pyrexia [Not Recovered/Not Resolved]
  - Urinary tract infection [Unknown]
  - Vomiting [Unknown]
  - Chest pain [Unknown]
  - Feeling abnormal [Unknown]
  - Headache [Unknown]
